FAERS Safety Report 18439642 (Version 2)
Quarter: 2020Q4

REPORT INFORMATION
  Report Type: Spontaneous
  Country: US (occurrence: US)
  Receive Date: 20201029
  Receipt Date: 20201030
  Transmission Date: 20210114
  Serious: No
  Sender: FDA-Public Use
  Company Number: US-TEVA-2020-US-1842832

PATIENT
  Age: 75 Year
  Sex: Female
  Weight: 101.15 kg

DRUGS (1)
  1. WARFARIN [Suspect]
     Active Substance: WARFARIN
     Indication: THROMBOSIS
     Route: 065
     Dates: start: 2019

REACTIONS (2)
  - Drug ineffective [Unknown]
  - Blood test abnormal [Unknown]
